FAERS Safety Report 7527826-X (Version None)
Quarter: 2011Q2

REPORT INFORMATION
  Report Type: 
  Country: None (occurrence: None)
  Receive Date: 20110607
  Receipt Date: 20110601
  Transmission Date: 20111010
  Serious: Yes (Other)
  Sender: FDA-Public Use
  Company Number: GR-PFIZER INC-2011118017

PATIENT
  Age: 65 Year
  Sex: Male
  Weight: 85 kg

DRUGS (1)
  1. SOLU-MEDROL [Suspect]
     Indication: PROPHYLAXIS
     Dosage: PACKAGES OF 40MG AND 125MG IN 100ML
     Route: 040
     Dates: start: 20110114, end: 20110114

REACTIONS (8)
  - BLOOD PRESSURE IMMEASURABLE [None]
  - ANAPHYLACTIC SHOCK [None]
  - ERYTHEMA [None]
  - PULSE ABSENT [None]
  - URINARY INCONTINENCE [None]
  - FAECAL INCONTINENCE [None]
  - LOSS OF CONSCIOUSNESS [None]
  - HYPOTENSION [None]
